FAERS Safety Report 16228809 (Version 1)
Quarter: 2019Q2

REPORT INFORMATION
  Report Type: Spontaneous
  Country: US (occurrence: US)
  Receive Date: 20190423
  Receipt Date: 20190423
  Transmission Date: 20190711
  Serious: Yes (Hospitalization)
  Sender: FDA-Public Use
  Company Number: US-PFIZER INC-2019168816

PATIENT
  Sex: Male

DRUGS (1)
  1. NITROGLYCERIN. [Suspect]
     Active Substance: NITROGLYCERIN
     Indication: MYOCARDIAL INFARCTION
     Dosage: UNK (ONE EVERY 5 MINUTES, SUBLINGUAL)
     Route: 060

REACTIONS (5)
  - Burning sensation [Unknown]
  - Product storage error [Unknown]
  - Product administration error [Unknown]
  - Myocardial infarction [Unknown]
  - Drug ineffective [Unknown]
